FAERS Safety Report 15782022 (Version 3)
Quarter: 2019Q3

REPORT INFORMATION
  Report Type: Spontaneous
  Country: US (occurrence: US)
  Receive Date: 20190102
  Receipt Date: 20190925
  Transmission Date: 20191004
  Serious: No
  Sender: FDA-Public Use
  Company Number: US-PFIZER INC-2018536886

PATIENT
  Age: 73 Year
  Sex: Male

DRUGS (6)
  1. OXYCODONE [Suspect]
     Active Substance: OXYCODONE
     Dosage: UNK
  2. LISINOPRIL. [Suspect]
     Active Substance: LISINOPRIL
     Dosage: UNK
  3. NORTRIPTYLINE [Suspect]
     Active Substance: NORTRIPTYLINE
     Dosage: UNK
  4. NALDECON SENIOR EX [Suspect]
     Active Substance: GUAIFENESIN
     Dosage: UNK
  5. VENLAFAXINE HCL [Suspect]
     Active Substance: VENLAFAXINE HYDROCHLORIDE
     Dosage: UNK
  6. NALDECON [CHLORPHENIRAMINE MALEATE\PHENYLEPHRINE\PHENYLPROPANOLAMINE\PHENYLTOLOXAMINE] [Suspect]
     Active Substance: CHLORPHENIRAMINE MALEATE\PHENYLEPHRINE\PHENYLPROPANOLAMINE\PHENYLTOLOXAMINE
     Dosage: UNK

REACTIONS (1)
  - Drug hypersensitivity [Unknown]
